FAERS Safety Report 22245454 (Version 2)
Quarter: 2023Q2

REPORT INFORMATION
  Report Type: Spontaneous
  Country: JP (occurrence: JP)
  Receive Date: 20230424
  Receipt Date: 20230530
  Transmission Date: 20230722
  Serious: Yes (Other)
  Sender: FDA-Public Use
  Company Number: JP-GLAXOSMITHKLINE-JP2023JPN004893

PATIENT

DRUGS (1)
  1. DAPRODUSTAT [Suspect]
     Active Substance: DAPRODUSTAT
     Dosage: UNK

REACTIONS (5)
  - Neutrophil count decreased [Recovered/Resolved]
  - Central hypothyroidism [Unknown]
  - Graves^ disease [Unknown]
  - Catheter placement [Unknown]
  - Device related infection [Unknown]
